FAERS Safety Report 9797006 (Version 1)
Quarter: 2014Q1

REPORT INFORMATION
  Report Type: Spontaneous
  Country: US (occurrence: US)
  Receive Date: 20140105
  Receipt Date: 20140105
  Transmission Date: 20141002
  Serious: No
  Sender: FDA-Public Use
  Company Number: US-009507513-1312USA011894

PATIENT
  Age: 21 Year
  Sex: Female
  Weight: 58 kg

DRUGS (8)
  1. PEPCID [Suspect]
     Indication: PROPHYLAXIS
     Route: 042
  2. CELESTONE [Suspect]
     Indication: MATERNAL THERAPY TO ENHANCE FOETAL LUNG MATURITY
  3. ZEMURON [Suspect]
     Indication: MAINTENANCE OF ANAESTHESIA
     Dosage: 40 MG, UNK
  4. ELECTROLYTES (UNSPECIFIED) (+) SODIUM LACTATE [Concomitant]
     Dosage: 500 ML/HR
  5. MORPHINE SULFATE [Concomitant]
     Indication: PAIN
     Dosage: UNK
     Route: 042
  6. SILVADENE [Concomitant]
     Route: 061
  7. BACITRACIN [Concomitant]
     Route: 061
  8. HEPARIN [Concomitant]
     Indication: THROMBOSIS PROPHYLAXIS
     Route: 058

REACTIONS (1)
  - Exposure during pregnancy [Unknown]
